FAERS Safety Report 8232369-4 (Version None)
Quarter: 2012Q1

REPORT INFORMATION
  Report Type: 
  Country: None (occurrence: None)
  Receive Date: 20120323
  Receipt Date: 20120316
  Transmission Date: 20120608
  Serious: Yes (Hospitalization)
  Sender: FDA-Public Use
  Company Number: US-GLAXOSMITHKLINE-A0970722A

PATIENT
  Age: 47 Year
  Sex: Male

DRUGS (1)
  1. RYTHMOL SR [Suspect]
     Indication: PRODUCT USED FOR UNKNOWN INDICATION
     Dosage: 325MG UNKNOWN
     Route: 065
     Dates: start: 20120221

REACTIONS (1)
  - CARDIAC DISORDER [None]
